FAERS Safety Report 6719292-9 (Version None)
Quarter: 2010Q2

REPORT INFORMATION
  Report Type: 
  Country: None (occurrence: None)
  Receive Date: 20100507
  Receipt Date: 20100427
  Transmission Date: 20101027
  Serious: Yes (Other)
  Sender: FDA-Public Use
  Company Number: DSU-2010-01141

PATIENT
  Age: 64 Year
  Sex: Female
  Weight: 121.564 kg

DRUGS (1)
  1. BENICAR HCT [Suspect]
     Indication: HYPERTENSION
     Dosage: 20/12.5 MG, PER ORAL
     Route: 048
     Dates: start: 20090102

REACTIONS (2)
  - HEPATIC ENZYME ABNORMAL [None]
  - PANCREATITIS [None]
